FAERS Safety Report 5771719-5 (Version None)
Quarter: 2008Q2

REPORT INFORMATION
  Report Type: 
  Country: None (occurrence: None)
  Receive Date: 20080613
  Receipt Date: 20080605
  Transmission Date: 20081010
  Serious: Yes (Death, Life-Threatening, Hospitalization)
  Sender: FDA-Public Use
  Company Number: US-SANOFI-SYNTHELABO-D01200803941

PATIENT
  Sex: Male
  Weight: 83.9 kg

DRUGS (12)
  1. AVASTIN [Suspect]
     Dates: start: 20080521, end: 20080521
  2. ASCORBIC ACID [Concomitant]
  3. KYTRIL [Concomitant]
  4. ATIVAN [Concomitant]
  5. COMPAZINE [Concomitant]
  6. COUMADIN [Concomitant]
     Indication: PULMONARY EMBOLISM
  7. AMBIEN [Concomitant]
  8. NORVASC [Concomitant]
     Indication: HYPERTENSION
  9. LEUCOVORIN CALCIUM [Suspect]
     Route: 042
     Dates: start: 20080521, end: 20080521
  10. FLUOROURACIL [Suspect]
     Dosage: 400 MG/M?, IV BOLUS D1+D2 FOLLOWED BY 5-FU 2400 MG/M? OVER 46-HOUR CONTINUOUS INFUSION.
     Route: 042
     Dates: start: 20080521, end: 20080521
  11. OXALIPLATIN [Suspect]
     Route: 042
     Dates: start: 20080521, end: 20080521
  12. SR57746 [Suspect]
     Route: 048
     Dates: start: 20080116, end: 20080524

REACTIONS (1)
  - CARDIO-RESPIRATORY ARREST [None]
